FAERS Safety Report 4507403-5 (Version None)
Quarter: 2004Q4

REPORT INFORMATION
  Report Type: 
  Country: None (occurrence: None)
  Receive Date: 20041118
  Receipt Date: 20041105
  Transmission Date: 20050328
  Serious: Yes (Other)
  Sender: FDA-Public Use
  Company Number: 2004089429

PATIENT
  Sex: Female
  Weight: 71.6683 kg

DRUGS (5)
  1. BEXTRA [Suspect]
     Indication: ARTHRALGIA
     Dosage: 10 MG (10 MG, 1 IN 1 D), ORAL
     Route: 048
     Dates: start: 20041001, end: 20040101
  2. CELEBREX [Suspect]
     Indication: PAIN
     Dosage: ORAL
     Route: 048
  3. SIMVASTATIN [Concomitant]
  4. DYAZIDE [Concomitant]
  5. VERAPAMIL HCL [Concomitant]

REACTIONS (5)
  - DRUG INEFFECTIVE [None]
  - EYE OEDEMA [None]
  - JOINT EFFUSION [None]
  - OEDEMA PERIPHERAL [None]
  - SWELLING [None]
